FAERS Safety Report 19802542 (Version 1)
Quarter: 2021Q3

REPORT INFORMATION
  Report Type: Spontaneous
  Country: US (occurrence: US)
  Receive Date: 20210902
  Receipt Date: 20210902
  Transmission Date: 20211014
  Serious: No
  Sender: FDA-Public Use
  Company Number: None

PATIENT
  Sex: Female

DRUGS (1)
  1. ENBREL [Suspect]
     Active Substance: ETANERCEPT
     Indication: RHEUMATOID ARTHRITIS
     Route: 058
     Dates: start: 202108

REACTIONS (6)
  - Injection site pain [None]
  - Chest pain [None]
  - Injection site bruising [None]
  - Musculoskeletal chest pain [None]
  - Heart rate increased [None]
  - Therapy non-responder [None]
